FAERS Safety Report 9547970 (Version 3)
Quarter: 2013Q4

REPORT INFORMATION
  Report Type: Spontaneous
  Country: US (occurrence: US)
  Receive Date: 20130924
  Receipt Date: 20131106
  Transmission Date: 20140711
  Serious: Yes (Life-Threatening, Hospitalization, Disabling)
  Sender: FDA-Public Use
  Company Number: US-009507513-1308USA012092

PATIENT
  Age: 65 Year
  Sex: Female
  Weight: 73.47 kg

DRUGS (1)
  1. ASMANEX TWISTHALER [Suspect]
     Indication: WHEEZING
     Dosage: ONE PUFF DAILY, QD
     Route: 055
     Dates: start: 20130812, end: 20131013

REACTIONS (5)
  - Bronchospasm [Not Recovered/Not Resolved]
  - Dyspnoea [Not Recovered/Not Resolved]
  - Hallucination [Not Recovered/Not Resolved]
  - Palpitations [Recovered/Resolved]
  - Hypersensitivity [Recovered/Resolved]
